FAERS Safety Report 5739285-8 (Version None)
Quarter: 2008Q2

REPORT INFORMATION
  Report Type: 
  Country: None (occurrence: None)
  Receive Date: 20080515
  Receipt Date: 20080506
  Transmission Date: 20081010
  Serious: Yes (Death, Hospitalization)
  Sender: FDA-Public Use
  Company Number: PT-BAXTER-2008BH004719

PATIENT
  Sex: Female

DRUGS (2)
  1. EXTRANEAL [Suspect]
     Indication: DIABETIC END STAGE RENAL DISEASE
     Dosage: DOSE UNIT:UNKNOWN
     Route: 033
  2. PHYSIONEAL, UNSPECIFIED PRODUCT VIAFLEX [Suspect]
     Indication: DIABETIC END STAGE RENAL DISEASE
     Dosage: DOSE UNIT:UNKNOWN
     Route: 033

REACTIONS (4)
  - DIARRHOEA [None]
  - MYOCARDIAL INFARCTION [None]
  - PERITONEAL DIALYSIS COMPLICATION [None]
  - PERITONITIS BACTERIAL [None]
